FAERS Safety Report 4798400-3 (Version None)
Quarter: 2005Q4

REPORT INFORMATION
  Report Type: 
  Country: None (occurrence: None)
  Receive Date: 20051011
  Receipt Date: 20050929
  Transmission Date: 20060501
  Serious: Yes (Death, Other)
  Sender: FDA-Public Use
  Company Number: 2005-05-2083

PATIENT
  Age: 44 Year
  Sex: Female

DRUGS (5)
  1. INTEGRILIN [Suspect]
     Indication: CORONARY ANGIOPLASTY
     Dosage: 180-2 MCG/KG* INTRAVENOUS
     Route: 042
     Dates: start: 20030101, end: 20030101
  2. INTEGRILIN [Suspect]
     Indication: CORONARY ANGIOPLASTY
     Dosage: 180-2 MCG/KG* INTRAVENOUS
     Route: 042
     Dates: start: 20030101, end: 20030101
  3. HEPARIN [Suspect]
  4. BETA-BLOCKER (NOS) [Concomitant]
  5. ANGIOTENSIN CONVERTING ENZYME INHIBITOR (NOS) [Concomitant]

REACTIONS (6)
  - CARDIAC PROCEDURE COMPLICATION [None]
  - CARDIAC TAMPONADE [None]
  - CORONARY ARTERY PERFORATION [None]
  - CORONARY ARTERY THROMBOSIS [None]
  - OPERATIVE HAEMORRHAGE [None]
  - PERICARDIAL HAEMORRHAGE [None]
